FAERS Safety Report 4580386-8 (Version None)
Quarter: 2005Q1

REPORT INFORMATION
  Report Type: 
  Country: None (occurrence: None)
  Receive Date: 20050127
  Receipt Date: 20041011
  Transmission Date: 20050727
  Serious: No
  Sender: FDA-Public Use
  Company Number: USA040773406

PATIENT
  Age: 10 Year
  Sex: Male
  Weight: 40 kg

DRUGS (4)
  1. STRATTERA [Suspect]
     Indication: ATTENTION DEFICIT/HYPERACTIVITY DISORDER
     Dosage: 40 MG DAY
  2. ADDERALL 10 [Concomitant]
  3. FAXIL (PAROXETINE HYDROCHLORIDE) [Concomitant]
  4. VITAMINS NOS [Concomitant]

REACTIONS (4)
  - ABDOMINAL PAIN UPPER [None]
  - MUSCLE TWITCHING [None]
  - NAUSEA [None]
  - SNEEZING [None]
